FAERS Safety Report 4313102-5 (Version None)
Quarter: 2004Q1

REPORT INFORMATION
  Report Type: 
  Country: None (occurrence: None)
  Receive Date: 20040304
  Receipt Date: 20040224
  Transmission Date: 20041129
  Serious: Yes (Other)
  Sender: FDA-Public Use
  Company Number: DE_040213037

PATIENT
  Age: 70 Year
  Sex: Female

DRUGS (2)
  1. XIGRIS [Suspect]
     Dates: start: 20040214, end: 20040218
  2. CATECHOLAMINES [Concomitant]

REACTIONS (1)
  - THROMBOCYTOPENIA [None]
